FAERS Safety Report 17237942 (Version 1)
Quarter: 2020Q1

REPORT INFORMATION
  Report Type: Report from Study
  Country: GB (occurrence: GB)
  Receive Date: 20200106
  Receipt Date: 20200106
  Transmission Date: 20200409
  Serious: Yes (Hospitalization)
  Sender: FDA-Public Use
  Company Number: GB-PACIRA-201900364

PATIENT
  Age: 79 Year

DRUGS (3)
  1. EXPAREL [Suspect]
     Active Substance: BUPIVACAINE
     Indication: POSTOPERATIVE ANALGESIA
     Dosage: 266 MG OF EXPAREL WITH 100 MG BUPIVACAINE HCL EXPANDED TO 120 ML WITH NORMAL SALINE
     Route: 052
     Dates: start: 20190425, end: 20190425
  2. RAMIPRIL. [Concomitant]
     Active Substance: RAMIPRIL
     Indication: HYPERTENSION
     Route: 048
  3. BUPIVACAINE HYDROCHLORIDE. [Suspect]
     Active Substance: BUPIVACAINE HYDROCHLORIDE
     Indication: POSTOPERATIVE ANALGESIA
     Route: 052
     Dates: start: 20190425, end: 20190425

REACTIONS (1)
  - Post procedural complication [Recovered/Resolved]

NARRATIVE: CASE EVENT DATE: 20190924
